FAERS Safety Report 14974047 (Version 1)
Quarter: 2018Q2

REPORT INFORMATION
  Report Type: Spontaneous
  Country: UA (occurrence: UA)
  Receive Date: 20180605
  Receipt Date: 20180605
  Transmission Date: 20180711
  Serious: Yes (Other)
  Sender: FDA-Public Use
  Company Number: UA-PFIZER INC-2018221571

PATIENT
  Age: 8 Year
  Sex: Female

DRUGS (2)
  1. IZONIAZID [Concomitant]
     Active Substance: ISONIAZID
  2. SOLU-MEDROL [Suspect]
     Active Substance: METHYLPREDNISOLONE SODIUM SUCCINATE
     Indication: THROMBOCYTOPENIA
     Dosage: 36 MG, DAILY

REACTIONS (4)
  - Weight increased [Unknown]
  - Diabetes mellitus [Unknown]
  - Cushingoid [Unknown]
  - Drug administered to patient of inappropriate age [Unknown]
